FAERS Safety Report 9598885 (Version 1)
Quarter: 2013Q4

REPORT INFORMATION
  Report Type: Spontaneous
  Country: US (occurrence: US)
  Receive Date: 20131004
  Receipt Date: 20131004
  Transmission Date: 20140711
  Serious: No
  Sender: FDA-Public Use
  Company Number: US-AMGEN-USASP2013026509

PATIENT
  Age: 54 Year
  Sex: Female
  Weight: 81.63 kg

DRUGS (7)
  1. ENBREL [Suspect]
     Indication: PRODUCT USED FOR UNKNOWN INDICATION
     Dosage: 50 MG, QWK
     Route: 058
     Dates: start: 2009
  2. HYDROXYCHLOROQUINE [Concomitant]
     Dosage: 200 MG, UNK
  3. CITRACAL + D                       /01438101/ [Concomitant]
     Dosage: UNK
  4. METHOTREXATE [Concomitant]
     Dosage: 2.5 MG, UNK
  5. PREDNISONE [Concomitant]
     Dosage: 1 MG, UNK
  6. TYLENOL                            /00020001/ [Concomitant]
     Dosage: 500 MG, UNK
  7. CENTRUM SILVER                     /02363801/ [Concomitant]
     Dosage: UNK

REACTIONS (1)
  - Drug effect decreased [Unknown]
